FAERS Safety Report 11882665 (Version 3)
Quarter: 2016Q2

REPORT INFORMATION
  Report Type: Spontaneous
  Country: FR (occurrence: FR)
  Receive Date: 20151231
  Receipt Date: 20160512
  Transmission Date: 20160815
  Serious: Yes (Hospitalization, Other)
  Sender: FDA-Public Use
  Company Number: FR-BAXTER-2015BAX070147

PATIENT
  Age: 11 Year
  Sex: Male
  Weight: 50 kg

DRUGS (13)
  1. IFOSFAMIDE FOR INJECTION [Suspect]
     Active Substance: IFOSFAMIDE
     Indication: SARCOMA
     Dosage: 6 COURSES OF VIDE
     Route: 042
     Dates: start: 20150102, end: 20150423
  2. CELLTOP 100 MG/5 ML, SOLUTION INJECTABLE POUR PERFUSION [Suspect]
     Active Substance: ETOPOSIDE
     Indication: SARCOMA
     Dosage: 6 COURSES OF VIDE
     Route: 042
     Dates: start: 20150102, end: 20150423
  3. VINCRISTINE SULFATE. [Suspect]
     Active Substance: VINCRISTINE SULFATE
     Dosage: 1 COURSE OF VAI
     Route: 065
     Dates: start: 20150511, end: 20150514
  4. COSMEGEN [Suspect]
     Active Substance: DACTINOMYCIN
     Indication: SARCOMA
     Dosage: 1 COURSE OF VAI
     Route: 065
     Dates: start: 20150511, end: 20150514
  5. COSMEGEN [Suspect]
     Active Substance: DACTINOMYCIN
     Dosage: 7 COURSES OF VAC
     Route: 042
     Dates: start: 20150602, end: 20151007
  6. MESNA FOR INJECTION - 3 GRAM [Suspect]
     Active Substance: MESNA
     Indication: PRODUCT USED FOR UNKNOWN INDICATION
     Dosage: 6 COURSES OF VIDE
     Route: 065
     Dates: start: 20150102, end: 20150423
  7. ENDOXAN 1000 MG, POUDRE POUR SOLUTION INJECTABLE [Suspect]
     Active Substance: CYCLOPHOSPHAMIDE
     Indication: SARCOMA
     Dosage: 7 COURSES OF VAC
     Route: 042
     Dates: start: 20150602, end: 20151007
  8. VINCRISTINE SULFATE. [Suspect]
     Active Substance: VINCRISTINE SULFATE
     Dosage: 7 COURSES OF VAC
     Route: 042
     Dates: start: 20150602, end: 20151007
  9. DOXORUBICIN HYDROCHLORIDE. [Suspect]
     Active Substance: DOXORUBICIN HYDROCHLORIDE
     Indication: SARCOMA
     Dosage: 6 COURSES OF VIDE
     Route: 042
     Dates: start: 20150102, end: 20150423
  10. MESNA FOR INJECTION - 3 GRAM [Suspect]
     Active Substance: MESNA
     Dosage: 1 COURSE OF VAI
     Route: 065
     Dates: start: 20150511, end: 20150514
  11. MESNA FOR INJECTION - 3 GRAM [Suspect]
     Active Substance: MESNA
     Dosage: 7 COURSES OF VAC
     Route: 065
     Dates: start: 20150602, end: 20151007
  12. IFOSFAMIDE FOR INJECTION [Suspect]
     Active Substance: IFOSFAMIDE
     Dosage: 1 COURSE OF VAI
     Route: 042
     Dates: start: 20150511, end: 20150514
  13. VINCRISTINE SULFATE. [Suspect]
     Active Substance: VINCRISTINE SULFATE
     Indication: SARCOMA
     Dosage: 6 COURSES OF VIDE
     Route: 065
     Dates: start: 20150102, end: 20150423

REACTIONS (4)
  - Pericardial disease [Unknown]
  - Congestive cardiomyopathy [Not Recovered/Not Resolved]
  - Cardiac failure chronic [Not Recovered/Not Resolved]
  - Hepatic pain [Unknown]

NARRATIVE: CASE EVENT DATE: 20151104
